FAERS Safety Report 4701593-7 (Version None)
Quarter: 2005Q2

REPORT INFORMATION
  Report Type: 
  Country: None (occurrence: None)
  Receive Date: 20050627
  Receipt Date: 20050621
  Transmission Date: 20051028
  Serious: Yes (Hospitalization)
  Sender: FDA-Public Use
  Company Number: ZONI002173

PATIENT
  Age: 1 Year
  Sex: Female

DRUGS (10)
  1. ZONISAMIDE [Suspect]
     Indication: POST-TRAUMATIC EPILEPSY
     Dosage: SEE IMAGE
     Route: 048
     Dates: start: 20050509, end: 20050511
  2. ZONISAMIDE [Suspect]
     Indication: POST-TRAUMATIC EPILEPSY
     Dosage: SEE IMAGE
     Route: 048
     Dates: start: 20050512, end: 20050514
  3. ZONISAMIDE [Suspect]
     Indication: POST-TRAUMATIC EPILEPSY
     Dosage: SEE IMAGE
     Route: 048
     Dates: start: 20050515, end: 20050519
  4. ZONISAMIDE [Suspect]
     Indication: POST-TRAUMATIC EPILEPSY
     Dosage: SEE IMAGE
     Route: 048
     Dates: start: 20050520, end: 20050524
  5. ZONISAMIDE [Suspect]
     Indication: POST-TRAUMATIC EPILEPSY
     Dosage: SEE IMAGE
     Route: 048
     Dates: start: 20050525, end: 20050601
  6. ZONISAMIDE [Suspect]
     Indication: POST-TRAUMATIC EPILEPSY
     Dosage: SEE IMAGE
     Route: 048
     Dates: start: 20050602, end: 20050604
  7. ZONISAMIDE [Suspect]
     Indication: POST-TRAUMATIC EPILEPSY
     Dosage: SEE IMAGE
     Route: 048
     Dates: start: 20050605, end: 20050607
  8. CALONAL                                (PARACETAMOL)_ [Concomitant]
  9. PANSPORIN                      (CEFOTIAM HYDROCHLORIDE) [Concomitant]
  10. ANHIBA               (PARACETAMOL) [Concomitant]

REACTIONS (2)
  - AGRANULOCYTOSIS [None]
  - RASH [None]
